FAERS Safety Report 7938103-7 (Version None)
Quarter: 2011Q4

REPORT INFORMATION
  Report Type: 
  Country: None (occurrence: None)
  Receive Date: 20111123
  Receipt Date: 20111117
  Transmission Date: 20120403
  Serious: Yes (Other)
  Sender: FDA-Public Use
  Company Number: US-ASTRAZENECA-2011SE70145

PATIENT
  Age: 65 Year
  Sex: Male

DRUGS (1)
  1. ATACAND [Suspect]
     Route: 048

REACTIONS (2)
  - CARDIAC DISORDER [None]
  - HEPATITIS C [None]
